FAERS Safety Report 12927303 (Version 1)
Quarter: 2016Q4

REPORT INFORMATION
  Report Type: Spontaneous
  Country: US (occurrence: US)
  Receive Date: 20161109
  Receipt Date: 20161109
  Transmission Date: 20170207
  Serious: Yes (Other)
  Sender: FDA-Public Use
  Company Number: None

PATIENT
  Sex: Female
  Weight: 94.89 kg

DRUGS (1)
  1. H.P. ACTHAR [Suspect]
     Active Substance: CORTICOTROPIN
     Indication: RHEUMATOID ARTHRITIS
     Dosage: 80 UNITS Q72HRS
     Route: 058
     Dates: start: 201609

REACTIONS (7)
  - Vomiting [None]
  - Dysstasia [None]
  - Pyrexia [None]
  - Fatigue [None]
  - Mobility decreased [None]
  - Dizziness [None]
  - Diarrhoea [None]
